FAERS Safety Report 12170693 (Version 2)
Quarter: 2016Q1

REPORT INFORMATION
  Report Type: Spontaneous
  Country: IL (occurrence: IL)
  Receive Date: 20160311
  Receipt Date: 20160321
  Transmission Date: 20160526
  Serious: Yes (Other)
  Sender: FDA-Public Use
  Company Number: IL-AMGEN-ISRSP2016029155

PATIENT
  Age: 17 Year
  Sex: Female

DRUGS (6)
  1. NPLATE [Suspect]
     Active Substance: ROMIPLOSTIM
     Indication: THROMBOCYTOPENIA
     Dosage: UNK UNK, QWK
     Route: 058
     Dates: start: 2013
  2. CELLCEPT [Concomitant]
     Active Substance: MYCOPHENOLATE MOFETIL\MYCOPHENOLATE MOFETIL HYDROCHLORIDE
     Dosage: UNK
     Route: 065
  3. DECAPEPTYL                         /00486501/ [Concomitant]
     Active Substance: GONADORELIN
     Route: 065
  4. PROGRAF [Concomitant]
     Active Substance: TACROLIMUS\TACROLIMUS ANHYDROUS
     Route: 065
  5. VITAMIN D                          /00107901/ [Concomitant]
     Active Substance: ERGOCALCIFEROL
     Route: 065
  6. CALCIUM [Concomitant]
     Active Substance: CALCIUM
     Route: 065

REACTIONS (2)
  - Renal impairment [Not Recovered/Not Resolved]
  - Proteinuria [Not Recovered/Not Resolved]
